FAERS Safety Report 11823452 (Version 2)
Quarter: 2016Q1

REPORT INFORMATION
  Report Type: Report from Study
  Country: BR (occurrence: BR)
  Receive Date: 20151210
  Receipt Date: 20160223
  Transmission Date: 20160525
  Serious: Yes (Other)
  Sender: FDA-Public Use
  Company Number: PHHY2015BR157058

PATIENT
  Sex: Female
  Weight: 87 kg

DRUGS (1)
  1. FORASEQ [Suspect]
     Active Substance: BUDESONIDE\FORMOTEROL FUMARATE
     Indication: CHRONIC OBSTRUCTIVE PULMONARY DISEASE
     Dosage: 12+200 MCG, BID (60 + 600 CAPSULE)
     Route: 065

REACTIONS (2)
  - Chondropathy [Unknown]
  - Product quality issue [Unknown]
